FAERS Safety Report 7626166-8 (Version None)
Quarter: 2011Q3

REPORT INFORMATION
  Report Type: 
  Country: None (occurrence: None)
  Receive Date: 20110721
  Receipt Date: 20110706
  Transmission Date: 20111222
  Serious: Yes (Hospitalization, Other)
  Sender: FDA-Public Use
  Company Number: PHHY2011JP35515

PATIENT
  Sex: Male
  Weight: 60 kg

DRUGS (12)
  1. GLYBURIDE [Concomitant]
     Dosage: 5 MG, UNK
     Route: 048
     Dates: start: 20080202
  2. VOGLIBOSE [Concomitant]
     Dosage: 0.9 MG, UNK
     Route: 048
     Dates: start: 20081015
  3. VALSARTAN [Suspect]
     Indication: HYPERTENSION
     Dosage: 80 MG, QD
     Route: 048
     Dates: start: 20080716, end: 20080912
  4. CONIEL [Concomitant]
     Dosage: 4 MG, UNK
     Route: 048
     Dates: start: 20080202
  5. ASPIRIN [Concomitant]
     Dosage: 100 MG, UNK
     Route: 048
     Dates: start: 20080202, end: 20080912
  6. VALSARTAN [Suspect]
     Dosage: 80 MG, QD
     Route: 048
     Dates: start: 20080925, end: 20081117
  7. LIPITOR [Concomitant]
     Dosage: 10 MG, UNK
     Route: 048
     Dates: start: 20080202, end: 20080912
  8. SELBEX [Concomitant]
     Dosage: 1.5 G, UNK
     Route: 048
     Dates: start: 20080202, end: 20080912
  9. MUCOSTA [Concomitant]
     Dosage: 300 MG, UNK
     Route: 048
     Dates: start: 20080926
  10. AMARYL [Concomitant]
     Dosage: 4 MG, UNK
     Route: 048
     Dates: start: 20090712
  11. URSO 250 [Concomitant]
     Dosage: 300 MG, UNK
     Route: 048
     Dates: start: 20080202
  12. ZOLPIDEM [Concomitant]
     Route: 048
     Dates: start: 20080312

REACTIONS (2)
  - BLOOD GLUCOSE INCREASED [None]
  - ALCOHOLIC LIVER DISEASE [None]
